FAERS Safety Report 4435813-3 (Version None)
Quarter: 2004Q3

REPORT INFORMATION
  Report Type: 
  Country: None (occurrence: None)
  Receive Date: 20040726
  Receipt Date: 20040415
  Transmission Date: 20050211
  Serious: No
  Sender: FDA-Public Use
  Company Number: USA040465127

PATIENT
  Age: 60 Year
  Sex: Female
  Weight: 65 kg

DRUGS (2)
  1. FORTEO [Suspect]
     Indication: OSTEOPOROSIS
     Dates: start: 20040322, end: 20040325
  2. PAXIL [Concomitant]

REACTIONS (3)
  - DIZZINESS [None]
  - NERVOUSNESS [None]
  - RESTLESSNESS [None]
